FAERS Safety Report 9382743 (Version 3)
Quarter: 2013Q3

REPORT INFORMATION
  Report Type: Report from Study
  Country: CA (occurrence: CA)
  Receive Date: 20130703
  Receipt Date: 20130719
  Transmission Date: 20140515
  Serious: Yes (Other)
  Sender: FDA-Public Use
  Company Number: CA-ABBOTT-13P-028-1112807-00

PATIENT
  Sex: Female

DRUGS (1)
  1. HUMIRA [Suspect]
     Indication: CROHN^S DISEASE
     Route: 058
     Dates: start: 20120227

REACTIONS (6)
  - Asthenia [Unknown]
  - Haematochezia [Unknown]
  - Angioplasty [Unknown]
  - Nausea [Unknown]
  - Hypertension [Unknown]
  - Blood count abnormal [Unknown]
